FAERS Safety Report 21773350 (Version 1)
Quarter: 2022Q4

REPORT INFORMATION
  Report Type: Spontaneous
  Country: US (occurrence: None)
  Receive Date: 20221222
  Receipt Date: 20221222
  Transmission Date: 20230112
  Serious: Yes (Hospitalization, Other)
  Sender: FDA-Public Use
  Company Number: None

PATIENT
  Age: 19 Year
  Sex: Male
  Weight: 79.4 kg

DRUGS (1)
  1. TIANEPTINE [Suspect]
     Active Substance: TIANEPTINE

REACTIONS (10)
  - Insomnia [None]
  - Psychotic disorder [None]
  - Anger [None]
  - Aggression [None]
  - Aggression [None]
  - Physical assault [None]
  - Abnormal behaviour [None]
  - Self-medication [None]
  - Product use in unapproved indication [None]
  - Intentional product misuse [None]

NARRATIVE: CASE EVENT DATE: 20221222
